FAERS Safety Report 5080755-6 (Version None)
Quarter: 2006Q3

REPORT INFORMATION
  Report Type: 
  Country: None (occurrence: None)
  Receive Date: 20060809
  Receipt Date: 20060724
  Transmission Date: 20061208
  Serious: Yes (Death, Other)
  Sender: FDA-Public Use
  Company Number: 2006AL001979

PATIENT
  Sex: Female

DRUGS (3)
  1. BACTRIM [Suspect]
     Dosage: PO
     Route: 048
  2. METHOTREXATE [Concomitant]
  3. FOLIC ACID [Concomitant]

REACTIONS (1)
  - DRUG INTERACTION [None]
